FAERS Safety Report 25323193 (Version 2)
Quarter: 2025Q2

REPORT INFORMATION
  Report Type: Spontaneous
  Country: ES (occurrence: ES)
  Receive Date: 20250516
  Receipt Date: 20250619
  Transmission Date: 20250716
  Serious: Yes (Hospitalization)
  Sender: ORGANON
  Company Number: None

PATIENT
  Age: 51 Year
  Sex: Male

DRUGS (9)
  1. SIMVASTATIN [Interacting]
     Active Substance: SIMVASTATIN
     Indication: Suicidal ideation
     Route: 048
     Dates: start: 20240729, end: 20240801
  2. ENALAPRIL MALEATE\HYDROCHLOROTHIAZIDE [Interacting]
     Active Substance: ENALAPRIL MALEATE\HYDROCHLOROTHIAZIDE
     Indication: Suicidal ideation
     Route: 048
     Dates: start: 20240729, end: 20240801
  3. GLICLAZIDE [Interacting]
     Active Substance: GLICLAZIDE
     Indication: Suicide attempt
     Route: 048
     Dates: start: 20240729, end: 20240801
  4. METFORMIN HYDROCHLORIDE\VILDAGLIPTIN [Interacting]
     Active Substance: METFORMIN HYDROCHLORIDE\VILDAGLIPTIN
     Indication: Suicidal ideation
     Route: 048
     Dates: start: 20240729, end: 20240801
  5. AMLODIPINE [Interacting]
     Active Substance: AMLODIPINE BESYLATE
     Indication: Suicidal ideation
     Route: 048
     Dates: start: 20240729, end: 20240801
  6. ACETAMINOPHEN [Interacting]
     Active Substance: ACETAMINOPHEN
     Indication: Suicidal ideation
     Route: 048
     Dates: start: 20240729, end: 20240801
  7. PREDNISONE [Interacting]
     Active Substance: PREDNISONE
     Indication: Suicidal ideation
     Route: 048
     Dates: start: 20240729, end: 20240801
  8. METFORMIN [Interacting]
     Active Substance: METFORMIN HYDROCHLORIDE
     Indication: Suicidal ideation
     Route: 048
     Dates: start: 20240729, end: 20240801
  9. METAMIZOLE SODIUM [Interacting]
     Active Substance: METAMIZOLE SODIUM
     Indication: Suicidal ideation
     Route: 048
     Dates: start: 20240729, end: 20240801

REACTIONS (4)
  - Acute kidney injury [Recovered/Resolved]
  - Hypokalaemia [Recovering/Resolving]
  - Intentional overdose [Recovered/Resolved]
  - Intentional product misuse [Unknown]

NARRATIVE: CASE EVENT DATE: 20240729
